FAERS Safety Report 5468909-8 (Version None)
Quarter: 2007Q3

REPORT INFORMATION
  Report Type: 
  Country: None (occurrence: None)
  Receive Date: 20070926
  Receipt Date: 20070917
  Transmission Date: 20080115
  Serious: Yes (Other)
  Sender: FDA-Public Use
  Company Number: US-SHR-US-2007-035168

PATIENT
  Age: 64 Year
  Sex: Female

DRUGS (1)
  1. BETASERON [Suspect]
     Dosage: 8 MIU, EVERY 2D
     Route: 058
     Dates: start: 19931217

REACTIONS (3)
  - INJECTION SITE PAIN [None]
  - SYSTEMIC LUPUS ERYTHEMATOSUS [None]
  - TRIGEMINAL NEURALGIA [None]
